FAERS Safety Report 7825887-1 (Version None)
Quarter: 2011Q4

REPORT INFORMATION
  Report Type: 
  Country: None (occurrence: None)
  Receive Date: 20111019
  Receipt Date: 20111004
  Transmission Date: 20120403
  Serious: Yes (Hospitalization)
  Sender: FDA-Public Use
  Company Number: CO-ROCHE-1001725

PATIENT

DRUGS (11)
  1. XOLAIR [Suspect]
     Indication: ASTHMA
     Dosage: 150 MG BY MONT
     Route: 058
  2. PREDNISOLONE [Concomitant]
  3. BECLOMETHASONE DIPROPIONATE [Concomitant]
  4. LORATADINE [Concomitant]
  5. FLUTICASONE PROPIONATE/SALMETEROL [Concomitant]
  6. MONTELUKAST SODIUM [Concomitant]
  7. THEOPHYLLINE [Concomitant]
  8. IPRATROPIUM BROMIDE [Concomitant]
  9. ALBUTEROL [Concomitant]
  10. LANSOPRAZOLE [Concomitant]
  11. METOCLOPRAMIDE [Concomitant]

REACTIONS (1)
  - ASTHMATIC CRISIS [None]
